FAERS Safety Report 21872420 (Version 1)
Quarter: 2023Q1

REPORT INFORMATION
  Report Type: Spontaneous
  Country: KR (occurrence: KR)
  Receive Date: 20230117
  Receipt Date: 20230117
  Transmission Date: 20230417
  Serious: No
  Sender: FDA-Public Use
  Company Number: KR-PFIZER INC-202300013377

PATIENT
  Age: 75 Year
  Sex: Female
  Weight: 47 kg

DRUGS (6)
  1. PAXLOVID [Suspect]
     Active Substance: NIRMATRELVIR\RITONAVIR
     Indication: COVID-19 treatment
     Dosage: [PF-07321332 300 MG]/[RITONAVIR 100 MG]; 2X/DAY
     Route: 048
     Dates: start: 20230109
  2. CANDESARTAN CILEXETIL [Concomitant]
     Active Substance: CANDESARTAN CILEXETIL
     Indication: Diabetes mellitus
     Dosage: UNK
     Route: 048
     Dates: start: 1990
  3. COUGH [CHLORPHENAMINE MALEATE;DIHYDROCODEINE BITARTRATE;GUAIFENESIN;ME [Concomitant]
     Indication: Cough
     Dosage: UNK
     Route: 048
     Dates: start: 20230109
  4. GLIMEPIRIDE [Concomitant]
     Active Substance: GLIMEPIRIDE
     Indication: Diabetes mellitus
     Dosage: UNK
     Route: 048
     Dates: start: 1990
  5. PLAMED [Concomitant]
     Indication: Diabetes mellitus
     Dosage: UNK
     Route: 048
     Dates: start: 1990
  6. GINKGO-MEXIN [Concomitant]
     Indication: Diabetes mellitus
     Dosage: UNK
     Route: 048
     Dates: start: 1990

REACTIONS (3)
  - Incorrect dose administered [Recovered/Resolved]
  - Dysgeusia [Not Recovered/Not Resolved]
  - Off label use [Unknown]

NARRATIVE: CASE EVENT DATE: 20230101
